FAERS Safety Report 20044152 (Version 1)
Quarter: 2021Q4

REPORT INFORMATION
  Report Type: Spontaneous
  Country: GB (occurrence: GB)
  Receive Date: 20211108
  Receipt Date: 20211108
  Transmission Date: 20220304
  Serious: Yes (Other)
  Sender: FDA-Public Use
  Company Number: GB-NOVARTISPH-NVSC2021GB250385

PATIENT
  Age: 56 Year
  Sex: Male

DRUGS (2)
  1. TEGRETOL [Suspect]
     Active Substance: CARBAMAZEPINE
     Indication: Product used for unknown indication
     Dosage: UNK
     Route: 065
  2. TEGRETOL [Suspect]
     Active Substance: CARBAMAZEPINE
     Indication: Product used for unknown indication
     Dosage: UNK (TWO IN THE EVENING)
     Route: 065

REACTIONS (3)
  - Seizure [Unknown]
  - Multiple sclerosis [Unknown]
  - Product availability issue [Unknown]

NARRATIVE: CASE EVENT DATE: 20211030
